FAERS Safety Report 9951780 (Version 1)
Quarter: 2014Q1

REPORT INFORMATION
  Report Type: Spontaneous
  Country: CG (occurrence: CG)
  Receive Date: 20140304
  Receipt Date: 20140304
  Transmission Date: 20141002
  Serious: Yes (Hospitalization, Other)
  Sender: FDA-Public Use
  Company Number: CG-MERCK-1402COG012374

PATIENT
  Age: 52 Year
  Sex: Male
  Weight: 75 kg

DRUGS (1)
  1. IVERMECTIN [Suspect]
     Indication: ONCHOCERCIASIS
     Dosage: 4 DF, ONCE
     Route: 048
     Dates: start: 20131119, end: 20131119

REACTIONS (7)
  - Encephalopathy [Recovered/Resolved]
  - Cystitis bacterial [Recovered/Resolved]
  - Coma [Recovered/Resolved]
  - Pyuria [Recovered/Resolved]
  - Blood pressure abnormal [Recovered/Resolved]
  - Body temperature [Recovered/Resolved]
  - Cystostomy [Recovered/Resolved]
